FAERS Safety Report 8502347 (Version 3)
Quarter: 2013Q1

REPORT INFORMATION
  Report Type: Spontaneous
  Country: AT (occurrence: AT)
  Receive Date: 20120410
  Receipt Date: 20130322
  Transmission Date: 20140127
  Serious: Yes (Death, Hospitalization, Other)
  Sender: FDA-Public Use
  Company Number: AT-ALEXION-A201200622

PATIENT
  Sex: Male

DRUGS (10)
  1. SOLIRIS 300MG [Suspect]
     Indication: PAROXYSMAL NOCTURNAL HAEMOGLOBINURIA
     Dosage: UNK
     Route: 042
     Dates: start: 2009, end: 2009
  2. SOLIRIS 300MG [Suspect]
     Dosage: 900 MG, Q2W
     Route: 042
     Dates: start: 2009, end: 201203
  3. SOLIRIS 300MG [Suspect]
     Dosage: 900 MG, QMONTH
     Route: 042
     Dates: start: 201203, end: 20120502
  4. NEUROBION FORTE [Concomitant]
     Indication: VITAMIN B12 DEFICIENCY
     Dosage: BID
  5. FOLSAN [Concomitant]
     Indication: FOLATE DEFICIENCY
     Dosage: 5 MG, QD
  6. CAL-D-VITA [Concomitant]
     Indication: OSTEOPOROSIS PROPHYLAXIS
     Dosage: QD
  7. PANTOLOC [Concomitant]
     Indication: GASTRITIS PROPHYLAXIS
     Dosage: 40 MG, QD
  8. CONCOR [Concomitant]
     Indication: HYPERTENSION
     Dosage: 5 MG, QD
  9. INSUMAN COMB [Concomitant]
     Indication: DIABETES MELLITUS
  10. LOVENOX [Concomitant]
     Indication: THROMBOSIS PROPHYLAXIS
     Dosage: 40 MG, QD

REACTIONS (3)
  - Colon cancer metastatic [Fatal]
  - Pancytopenia [Unknown]
  - Multi-organ failure [Fatal]
